FAERS Safety Report 12214206 (Version 1)
Quarter: 2016Q1

REPORT INFORMATION
  Report Type: Spontaneous
  Country: GB (occurrence: GB)
  Receive Date: 20160328
  Receipt Date: 20160328
  Transmission Date: 20160526
  Serious: Yes (Life-Threatening, Other)
  Sender: FDA-Public Use
  Company Number: GB-PFIZER INC-2016176871

PATIENT
  Age: 70 Year
  Sex: Male

DRUGS (3)
  1. EPIRUBICIN HCL [Suspect]
     Active Substance: EPIRUBICIN HYDROCHLORIDE
     Indication: ADENOCARCINOMA GASTRIC
     Dosage: UNK
  2. OXALIPLATIN. [Suspect]
     Active Substance: OXALIPLATIN
     Indication: ADENOCARCINOMA GASTRIC
     Dosage: UNK
  3. CAPECITABINE. [Suspect]
     Active Substance: CAPECITABINE
     Indication: ADENOCARCINOMA GASTRIC
     Dosage: UNK

REACTIONS (2)
  - Arterial thrombosis [Recovered/Resolved]
  - Metabolic acidosis [Recovered/Resolved]
